FAERS Safety Report 21305865 (Version 1)
Quarter: 2022Q3

REPORT INFORMATION
  Report Type: Report from Study
  Country: MX (occurrence: MX)
  Receive Date: 20220908
  Receipt Date: 20220908
  Transmission Date: 20221027
  Serious: Yes (Other)
  Sender: FDA-Public Use
  Company Number: MX-UCBSA-2022052736

PATIENT
  Age: 50 Year
  Sex: Male
  Weight: 89 kg

DRUGS (15)
  1. LEVETIRACETAM [Suspect]
     Active Substance: LEVETIRACETAM
     Indication: Epilepsy
     Dosage: 500 MILLIGRAM, 2X/DAY (BID)
     Route: 048
  2. LEVETIRACETAM [Suspect]
     Active Substance: LEVETIRACETAM
     Dosage: 1 GRAM, ONCE DAILY (QD)
     Route: 048
     Dates: end: 202204
  3. CLONIXIN [Suspect]
     Active Substance: CLONIXIN
     Indication: Product used for unknown indication
     Dosage: 250MG 3 TABLET A DAY
     Dates: end: 202204
  4. FUROSEMIDE\SPIRONOLACTONE [Concomitant]
     Active Substance: FUROSEMIDE\SPIRONOLACTONE
     Indication: Product used for unknown indication
  5. RIFAXIMIN [Concomitant]
     Active Substance: RIFAXIMIN
     Indication: Hepatic infection
  6. GABAPENTIN [Concomitant]
     Active Substance: GABAPENTIN
     Indication: Spinal fracture
  7. PROPRANOLOL HYDROCHLORIDE [Concomitant]
     Active Substance: PROPRANOLOL HYDROCHLORIDE
     Indication: Hepatic infection
  8. TIAMINAL [Concomitant]
     Indication: Red blood cell count
  9. HEMOSIN-K [Concomitant]
     Indication: Red blood cell count
  10. CETIRIZINE HYDROCHLORIDE [Concomitant]
     Active Substance: CETIRIZINE HYDROCHLORIDE
     Indication: Pruritus
  11. NOZACOL [Concomitant]
     Indication: Red blood cell count
  12. VITAMINS [Concomitant]
     Active Substance: VITAMINS
     Indication: Vitamin supplementation
  13. ALBUMIN HUMAN [Concomitant]
     Active Substance: ALBUMIN HUMAN
     Indication: Hepatic pain
  14. RENEGY [Concomitant]
     Indication: Anaemia
  15. LACTULAX [Concomitant]
     Indication: Liver disorder

REACTIONS (8)
  - Spinal fracture [Recovering/Resolving]
  - Bedridden [Recovering/Resolving]
  - Encephalopathy [Recovered/Resolved]
  - Therapeutic response unexpected [Recovered/Resolved]
  - Pruritus [Recovered/Resolved]
  - Hernia [Unknown]
  - Ammonia [Unknown]
  - Product use issue [Unknown]

NARRATIVE: CASE EVENT DATE: 20220401
